FAERS Safety Report 8206891-0 (Version None)
Quarter: 2012Q1

REPORT INFORMATION
  Report Type: 
  Country: None (occurrence: None)
  Receive Date: 20120308
  Receipt Date: 20120228
  Transmission Date: 20120608
  Serious: Yes (Other)
  Sender: FDA-Public Use
  Company Number: 2012031211

PATIENT
  Age: 20 Year
  Sex: Female

DRUGS (3)
  1. CHLORPHENIRAMINE MALEATE [Concomitant]
  2. RHOPHYLAC [Suspect]
     Indication: KLEIHAUER-BETKE TEST
     Dosage: 4500 IU INTRAVENOUS (NOT OTHERWISE SPECIFIED)
     Route: 042
     Dates: start: 20120130, end: 20120130
  3. HYDROCORTONE [Concomitant]

REACTIONS (3)
  - MALAISE [None]
  - FEELING COLD [None]
  - BODY TEMPERATURE INCREASED [None]
